FAERS Safety Report 4565294-0 (Version None)
Quarter: 2005Q1

REPORT INFORMATION
  Report Type: 
  Country: None (occurrence: None)
  Receive Date: 20050124
  Receipt Date: 20050106
  Transmission Date: 20050727
  Serious: Yes (Death, Hospitalization)
  Sender: FDA-Public Use
  Company Number: 601700

PATIENT
  Age: 46 Year
  Sex: Male
  Weight: 71 kg

DRUGS (2)
  1. FEIBA VH IMMUNO [Suspect]
     Indication: FACTOR VII DEFICIENCY
     Dosage: INTRAVENOUS
     Route: 042
     Dates: start: 20041216, end: 20041217
  2. VIOXX [Concomitant]

REACTIONS (2)
  - CEREBRAL HAEMORRHAGE [None]
  - CONDITION AGGRAVATED [None]
